FAERS Safety Report 17160059 (Version 2)
Quarter: 2020Q1

REPORT INFORMATION
  Report Type: Spontaneous
  Country: US (occurrence: US)
  Receive Date: 20191216
  Receipt Date: 20200213
  Transmission Date: 20200409
  Serious: Yes (Other)
  Sender: FDA-Public Use
  Company Number: US-SA-2019SA346686

PATIENT
  Age: 57 Year
  Sex: Female
  Weight: 84 kg

DRUGS (4)
  1. NEOSAR [Concomitant]
     Active Substance: CYCLOPHOSPHAMIDE
     Indication: INVASIVE DUCTAL BREAST CARCINOMA
  2. METHOTREXATE. [Concomitant]
     Active Substance: METHOTREXATE
  3. TAXOTERE [Suspect]
     Active Substance: DOCETAXEL
     Indication: INVASIVE DUCTAL BREAST CARCINOMA
     Dosage: 75 MG/M2, Q3W
     Route: 042
     Dates: start: 20110407, end: 20110407
  4. TAXOTERE [Suspect]
     Active Substance: DOCETAXEL
     Dosage: 75 MG/M2, Q3W
     Route: 042
     Dates: start: 20110609, end: 20110609

REACTIONS (1)
  - Alopecia [Recovering/Resolving]

NARRATIVE: CASE EVENT DATE: 201104
